FAERS Safety Report 5799601-8 (Version None)
Quarter: 2008Q3

REPORT INFORMATION
  Report Type: 
  Country: None (occurrence: None)
  Receive Date: 20080703
  Receipt Date: 20080624
  Transmission Date: 20090109
  Serious: Yes (Other)
  Sender: FDA-Public Use
  Company Number: PHHY2008PT12077

PATIENT
  Sex: Female
  Weight: 37.5 kg

DRUGS (2)
  1. RITALIN LA [Suspect]
     Indication: ATTENTION DEFICIT/HYPERACTIVITY DISORDER
     Dosage: 20 MG DAILY
     Route: 048
     Dates: start: 20080402, end: 20080405
  2. VALPROATE SODIUM [Concomitant]
     Indication: EPILEPSY
     Dosage: 600 MG/DAY
     Route: 048
     Dates: start: 20050801

REACTIONS (7)
  - ATAXIA [None]
  - CONFUSIONAL STATE [None]
  - DYSTONIA [None]
  - EXTRAPYRAMIDAL DISORDER [None]
  - GAZE PALSY [None]
  - POSTURE ABNORMAL [None]
  - SALIVARY HYPERSECRETION [None]
